FAERS Safety Report 7395142-5 (Version None)
Quarter: 2011Q2

REPORT INFORMATION
  Report Type: 
  Country: None (occurrence: None)
  Receive Date: 20110405
  Receipt Date: 20110323
  Transmission Date: 20111010
  Serious: Yes (Other)
  Sender: FDA-Public Use
  Company Number: PHHY2011US24173

PATIENT
  Sex: Female

DRUGS (10)
  1. RECLAST [Suspect]
     Indication: OSTEOPOROSIS
     Dosage: 5 MG, PER YEAR
     Route: 042
     Dates: start: 20091201
  2. LEVOTHYROXINE [Concomitant]
  3. SIMVASTATIN [Concomitant]
  4. LANSOPRAZOLE [Concomitant]
  5. RECLAST [Suspect]
     Dosage: 5 MG, PER YEAR
     Route: 042
     Dates: start: 20101201
  6. MULTIVITAMIN [Concomitant]
  7. VITAMIN D [Concomitant]
     Dosage: 1000 IU, BID
  8. ASPIRIN [Concomitant]
  9. CALCIUM [Concomitant]
     Dosage: 600 MG, BID
  10. MULTIVITAMIN [Concomitant]

REACTIONS (2)
  - MULTIPLE FRACTURES [None]
  - BACK DISORDER [None]
